FAERS Safety Report 20121180 (Version 1)
Quarter: 2021Q4

REPORT INFORMATION
  Report Type: Spontaneous
  Country: US (occurrence: None)
  Receive Date: 20211124
  Receipt Date: 20211124
  Transmission Date: 20220304
  Serious: Yes (Hospitalization)
  Sender: FDA-Public Use
  Company Number: None

PATIENT
  Age: 52 Year
  Sex: Male

DRUGS (12)
  1. STELARA [Suspect]
     Active Substance: USTEKINUMAB
     Indication: Psoriatic arthropathy
     Dosage: OTHER FREQUENCY : ONCE Q12W;?
     Route: 058
     Dates: start: 20170407
  2. OZEMPIC [Concomitant]
     Active Substance: SEMAGLUTIDE
  3. oxylocin [Concomitant]
  4. ELIQUIS [Concomitant]
     Active Substance: APIXABAN
  5. OXYCODONE [Concomitant]
     Active Substance: OXYCODONE
  6. METOPROLOL TARTRATE [Concomitant]
     Active Substance: METOPROLOL TARTRATE
  7. LISINOPRIL [Concomitant]
     Active Substance: LISINOPRIL
  8. AMOXICILLIN [Concomitant]
     Active Substance: AMOXICILLIN
  9. FARXIGA [Concomitant]
     Active Substance: DAPAGLIFLOZIN PROPANEDIOL
  10. METFORMIN [Concomitant]
     Active Substance: METFORMIN HYDROCHLORIDE
  11. SIMVASTATIN [Concomitant]
     Active Substance: SIMVASTATIN
  12. ASPIRIN [Concomitant]
     Active Substance: ASPIRIN

REACTIONS (1)
  - Surgery [None]

NARRATIVE: CASE EVENT DATE: 20211101
